FAERS Safety Report 5680883-8 (Version None)
Quarter: 2008Q1

REPORT INFORMATION
  Report Type: 
  Country: None (occurrence: None)
  Receive Date: 20080326
  Receipt Date: 20080320
  Transmission Date: 20080703
  Serious: Yes (Other)
  Sender: FDA-Public Use
  Company Number: US-PFIZER INC-2008025789

PATIENT
  Sex: Female

DRUGS (2)
  1. XANAX [Suspect]
  2. ACETAMINOPHEN, ASPIRIN AND CAFFEINE [Suspect]

REACTIONS (2)
  - MIGRAINE [None]
  - SPEECH DISORDER [None]
